FAERS Safety Report 6214027-0 (Version None)
Quarter: 2009Q2

REPORT INFORMATION
  Report Type: 
  Country: None (occurrence: None)
  Receive Date: 20090604
  Receipt Date: 20090526
  Transmission Date: 20091009
  Serious: Yes (Other)
  Sender: FDA-Public Use
  Company Number: US-AMGEN-KDL348832

PATIENT
  Age: 80 Year
  Sex: Male

DRUGS (16)
  1. PROCRIT [Suspect]
     Indication: RENAL FAILURE CHRONIC
     Route: 058
     Dates: start: 20081004
  2. ASPIRIN [Concomitant]
  3. XANAX [Concomitant]
  4. COUMADIN [Concomitant]
  5. CLARITIN [Concomitant]
  6. CRESTOR [Concomitant]
  7. TENORMIN [Concomitant]
  8. AZATHIOPRINE [Concomitant]
  9. CORTISONE [Concomitant]
  10. ATROVENT [Concomitant]
  11. ALLOPURINOL [Concomitant]
  12. LASIX [Concomitant]
  13. ALDACTONE [Concomitant]
  14. AMLODIPINE [Concomitant]
  15. OLMESARTAN [Concomitant]
  16. FEOSOL [Concomitant]

REACTIONS (4)
  - ANXIETY [None]
  - DYSPNOEA [None]
  - RASH PAPULAR [None]
  - RASH PRURITIC [None]
